FAERS Safety Report 6962643-0 (Version None)
Quarter: 2010Q3

REPORT INFORMATION
  Report Type: 
  Country: None (occurrence: None)
  Receive Date: 20100902
  Receipt Date: 20100822
  Transmission Date: 20110219
  Serious: Yes (Other)
  Sender: FDA-Public Use
  Company Number: US-PFIZER INC-2010106274

PATIENT
  Age: 73 Year
  Sex: Female

DRUGS (2)
  1. NEURONTIN [Suspect]
     Indication: ANALGESIC THERAPY
     Dosage: 300 MG, UNK
  2. NEURONTIN [Suspect]
     Dosage: 100 MG, UNK

REACTIONS (3)
  - ADVERSE DRUG REACTION [None]
  - ILL-DEFINED DISORDER [None]
  - MENTAL IMPAIRMENT [None]
